FAERS Safety Report 9500982 (Version 1)
Quarter: 2013Q3

REPORT INFORMATION
  Report Type: Report from Study
  Country: GB (occurrence: GB)
  Receive Date: 20130905
  Receipt Date: 20130905
  Transmission Date: 20140515
  Serious: Yes (Death)
  Sender: FDA-Public Use
  Company Number: GB-ABBOTT-13P-167-1141973-00

PATIENT
  Age: 78 Year
  Sex: Female

DRUGS (1)
  1. HUMIRA [Suspect]
     Indication: RHEUMATOID ARTHRITIS
     Route: 058
     Dates: start: 20061023, end: 20080801

REACTIONS (6)
  - Myelodysplastic syndrome [Fatal]
  - Sepsis [Fatal]
  - Pneumonia [Fatal]
  - Cardiac failure congestive [Fatal]
  - Polymyalgia rheumatica [Fatal]
  - Dementia [Fatal]
